FAERS Safety Report 18538115 (Version 2)
Quarter: 2023Q1

REPORT INFORMATION
  Report Type: Report from Study
  Country: US (occurrence: US)
  Receive Date: 20201124
  Receipt Date: 20230315
  Transmission Date: 20230418
  Serious: Yes (Hospitalization, Other)
  Sender: FDA-Public Use
  Company Number: US-ASTELLAS-2019US016220

PATIENT
  Age: 78 Year
  Sex: Male

DRUGS (8)
  1. ENZALUTAMIDE [Interacting]
     Active Substance: ENZALUTAMIDE
     Indication: Prostate cancer
     Route: 048
     Dates: start: 20181109, end: 20190416
  2. ENZALUTAMIDE [Interacting]
     Active Substance: ENZALUTAMIDE
     Route: 048
     Dates: start: 20190417
  3. ENZALUTAMIDE [Interacting]
     Active Substance: ENZALUTAMIDE
     Route: 048
  4. ASPIRIN [Interacting]
     Active Substance: ASPIRIN
     Indication: Product used for unknown indication
     Dosage: UNK UNK, UNKNOWN FREQ.
     Route: 065
  5. ALEVE [Interacting]
     Active Substance: NAPROXEN SODIUM
     Indication: Product used for unknown indication
     Dosage: UNK UNK, UNKNOWN FREQ.
     Route: 065
  6. POTASSIUM CITRATE [Concomitant]
     Active Substance: POTASSIUM CITRATE
     Indication: Product used for unknown indication
     Route: 048
     Dates: start: 20190529
  7. FLOMAX [Concomitant]
     Active Substance: TAMSULOSIN HYDROCHLORIDE
     Indication: Product used for unknown indication
     Dosage: 0.4 MG, ONCE DAILY
     Route: 048
     Dates: start: 20180508
  8. LUPRON [Concomitant]
     Active Substance: LEUPROLIDE ACETATE
     Indication: Product used for unknown indication
     Dosage: UNK UNK, UNKNOWN FREQ.
     Route: 065

REACTIONS (9)
  - Gastric haemorrhage [Unknown]
  - Dysuria [Unknown]
  - Joint injury [Unknown]
  - Myalgia [Unknown]
  - Arthralgia [Unknown]
  - Pollakiuria [Unknown]
  - Fall [Unknown]
  - Fatigue [Recovering/Resolving]
  - Drug interaction [Unknown]

NARRATIVE: CASE EVENT DATE: 20190401
